FAERS Safety Report 24308929 (Version 2)
Quarter: 2024Q4

REPORT INFORMATION
  Report Type: Spontaneous
  Country: US (occurrence: US)
  Receive Date: 20240911
  Receipt Date: 20241016
  Transmission Date: 20250114
  Serious: Yes (Death, Other)
  Sender: NOVARTIS
  Company Number: US-002147023-NVSC2024US181321

PATIENT
  Age: 64 Year
  Sex: Female

DRUGS (1)
  1. VOTRIENT [Suspect]
     Active Substance: PAZOPANIB HYDROCHLORIDE
     Indication: Product used for unknown indication
     Dosage: 200 MG, QID
     Route: 048

REACTIONS (3)
  - Death [Fatal]
  - Synovial sarcoma [Unknown]
  - Product supply issue [Unknown]

NARRATIVE: CASE EVENT DATE: 20240819
